FAERS Safety Report 8256339-5 (Version None)
Quarter: 2012Q1

REPORT INFORMATION
  Report Type: 
  Country: None (occurrence: None)
  Receive Date: 20120322
  Receipt Date: 20111215
  Transmission Date: 20120608
  Serious: Yes (Hospitalization)
  Sender: FDA-Public Use
  Company Number: UTC-011986

PATIENT
  Age: 54 Year
  Sex: Female
  Weight: 69.5 kg

DRUGS (5)
  1. OXYGEN (OXYGEN) [Concomitant]
  2. TRACLEER [Concomitant]
  3. REVATIO [Concomitant]
  4. TYVASO [Suspect]
     Indication: COR PULMONALE CHRONIC
     Dosage: 18-54 MICROGRAM (4 IN 1 D), INHALATION
     Route: 055
     Dates: start: 20091127
  5. DIURETICS (DIURETICS) [Concomitant]

REACTIONS (2)
  - GASTROINTESTINAL HAEMORRHAGE [None]
  - SWELLING [None]
